FAERS Safety Report 19384956 (Version 2)
Quarter: 2021Q3

REPORT INFORMATION
  Report Type: Report from Study
  Country: US (occurrence: US)
  Receive Date: 20210608
  Receipt Date: 20210709
  Transmission Date: 20211014
  Serious: Yes (Death, Other)
  Sender: FDA-Public Use
  Company Number: US-ACADIA PHARMACEUTICALS INC.-ACA-2021-PIM-002024

PATIENT
  Age: 86 Year
  Sex: Male

DRUGS (9)
  1. MELATONIN [Concomitant]
     Active Substance: MELATONIN
  2. NAMENDA [Concomitant]
     Active Substance: MEMANTINE HYDROCHLORIDE
  3. NUPLAZID [Suspect]
     Active Substance: PIMAVANSERIN TARTRATE
     Indication: HALLUCINATION
     Dosage: 34 MILLIGRAM, QD
     Route: 048
     Dates: start: 202008
  4. NUPLAZID [Suspect]
     Active Substance: PIMAVANSERIN TARTRATE
     Indication: PARKINSON^S DISEASE PSYCHOSIS
  5. GALANTAMINE. [Concomitant]
     Active Substance: GALANTAMINE
  6. NUPLAZID [Suspect]
     Active Substance: PIMAVANSERIN TARTRATE
     Indication: DELUSION
  7. SINEMET [Concomitant]
     Active Substance: CARBIDOPA\LEVODOPA
  8. QUETIAPINE. [Concomitant]
     Active Substance: QUETIAPINE
  9. ATORVASTATIN [Concomitant]
     Active Substance: ATORVASTATIN

REACTIONS (1)
  - Death [Recovered/Resolved]

NARRATIVE: CASE EVENT DATE: 20210310
